FAERS Safety Report 5811673-0 (Version None)
Quarter: 2008Q3

REPORT INFORMATION
  Report Type: 
  Country: None (occurrence: None)
  Receive Date: 20080716
  Receipt Date: 20080715
  Transmission Date: 20090109
  Serious: Yes (Hospitalization)
  Sender: FDA-Public Use
  Company Number: A0737597A

PATIENT
  Age: 28 Year
  Sex: Female

DRUGS (1)
  1. ALLI [Suspect]

REACTIONS (3)
  - CONSTIPATION [None]
  - DIVERTICULITIS [None]
  - PAIN [None]
